FAERS Safety Report 9717095 (Version 2)
Quarter: 2013Q4

REPORT INFORMATION
  Report Type: Spontaneous
  Country: US (occurrence: US)
  Receive Date: 20131127
  Receipt Date: 20131127
  Transmission Date: 20140711
  Serious: No
  Sender: FDA-Public Use
  Company Number: US-GILEAD-2009-0020742

PATIENT
  Sex: Female
  Weight: 70.31 kg

DRUGS (8)
  1. LETAIRIS [Suspect]
     Indication: PULMONARY ARTERIAL HYPERTENSION
     Route: 048
     Dates: start: 20090217
  2. WARFARIN [Concomitant]
  3. AMLODIPINE [Concomitant]
  4. SERTRALINE [Concomitant]
  5. LORATADINE [Concomitant]
  6. FLONASE NASAL SPRAY [Concomitant]
  7. HYDROCODONE 5/500 [Concomitant]
  8. TYLENOL PM [Concomitant]

REACTIONS (1)
  - Nasal congestion [Unknown]
